FAERS Safety Report 4846820-0 (Version None)
Quarter: 2005Q4

REPORT INFORMATION
  Report Type: 
  Country: None (occurrence: None)
  Receive Date: 20051207
  Receipt Date: 20051125
  Transmission Date: 20060501
  Serious: Yes (Other)
  Sender: FDA-Public Use
  Company Number: PHBS2005GB17507

PATIENT
  Age: 37 Year
  Sex: Male

DRUGS (3)
  1. CYCLOSPORINE [Suspect]
     Indication: DERMATITIS ATOPIC
     Dosage: 3 MG/KG DAILY
  2. CYCLOSPORINE [Suspect]
     Dosage: 4 MG/KG DAILY
  3. SERTRALINE HCL [Concomitant]
     Indication: DEPRESSION
     Dosage: 50 MG DAILY

REACTIONS (7)
  - BLOOD CREATINE PHOSPHOKINASE INCREASED [None]
  - DECREASED APPETITE [None]
  - MUSCLE SPASMS [None]
  - MYALGIA [None]
  - MYOPATHY TOXIC [None]
  - SLEEP DISORDER [None]
  - TREMOR [None]
